FAERS Safety Report 20009395 (Version 1)
Quarter: 2021Q4

REPORT INFORMATION
  Report Type: Spontaneous
  Country: US (occurrence: US)
  Receive Date: 20211028
  Receipt Date: 20211028
  Transmission Date: 20220304
  Serious: Yes (Life-Threatening)
  Sender: FDA-Public Use
  Company Number: None

PATIENT
  Age: 71 Year
  Sex: Male
  Weight: 129 kg

DRUGS (11)
  1. BARICITINIB [Suspect]
     Active Substance: BARICITINIB
     Indication: COVID-19
     Route: 048
     Dates: start: 20211024, end: 20211026
  2. acetaminophen 1000mg q6h PRN [Concomitant]
     Dates: start: 20211024
  3. dexamethasone 6 mg IV daily [Concomitant]
     Dates: start: 20211024, end: 20211027
  4. enoxaparin 40 mg sq q12h [Concomitant]
     Dates: start: 20211024, end: 20211026
  5. famotidine 20 mg IV BID [Concomitant]
     Dates: start: 20211024
  6. guaifenesin ER 600 mg q12h [Concomitant]
     Dates: start: 20211024
  7. ondansetron 4 mg q8h PRN [Concomitant]
     Dates: start: 20211024
  8. remdesivir 200 mg once, followed by 100 mg q24h [Concomitant]
     Dates: start: 20211024, end: 20211028
  9. vitamin c 500 mg daily [Concomitant]
     Dates: start: 20211024
  10. vitamin d 1000 units daily [Concomitant]
     Dates: start: 20211024
  11. zinc sulfate 220 mg [Concomitant]
     Dates: start: 20211024

REACTIONS (2)
  - Abdominal pain [None]
  - Diverticular perforation [None]

NARRATIVE: CASE EVENT DATE: 20211026
